FAERS Safety Report 6584905-1 (Version None)
Quarter: 2010Q1

REPORT INFORMATION
  Report Type: 
  Country: None (occurrence: None)
  Receive Date: 20100217
  Receipt Date: 20100211
  Transmission Date: 20100710
  Serious: Yes (Hospitalization)
  Sender: FDA-Public Use
  Company Number: DE-WYE-G04840109

PATIENT
  Age: 48 Year
  Sex: Female

DRUGS (19)
  1. TREVILOR [Suspect]
     Indication: DEPRESSION
     Route: 048
     Dates: start: 20090601, end: 20090722
  2. TREVILOR [Interacting]
     Route: 048
     Dates: start: 20090723, end: 20090923
  3. TREVILOR [Interacting]
     Route: 048
     Dates: start: 20090924, end: 20090926
  4. TREVILOR [Interacting]
     Route: 048
     Dates: start: 20090927, end: 20090928
  5. TREVILOR [Interacting]
     Dosage: TAPERING FROM 150 TO 0 MG/D
     Route: 048
     Dates: start: 20090929, end: 20091003
  6. PANTOZOL [Concomitant]
     Route: 048
     Dates: start: 20090719
  7. DIAZEPAM [Interacting]
     Route: 048
     Dates: start: 20090811, end: 20090824
  8. BISOPROLOL [Concomitant]
     Indication: HYPERTENSION
     Dosage: 5 MG PER DAY FROM AN UNKNOWN DATE UNTIL 23-SEP-2009
     Route: 048
  9. REMERGIL [Interacting]
     Indication: DEPRESSION
     Route: 048
     Dates: start: 20090601, end: 20090818
  10. REMERGIL [Interacting]
     Route: 048
     Dates: start: 20090819, end: 20091002
  11. REMERGIL [Interacting]
     Route: 048
     Dates: start: 20091003, end: 20091030
  12. SEROQUEL [Interacting]
     Indication: DEPRESSION
     Route: 048
     Dates: start: 20090704, end: 20090712
  13. SEROQUEL [Interacting]
     Route: 048
     Dates: start: 20090713, end: 20090729
  14. SEROQUEL [Interacting]
     Route: 048
     Dates: start: 20090730, end: 20090803
  15. SEROQUEL [Interacting]
     Route: 048
     Dates: start: 20090804, end: 20090811
  16. SEROQUEL [Interacting]
     Dosage: 550-400 MG PER DAY
     Route: 048
     Dates: start: 20090812, end: 20090827
  17. SEROQUEL [Interacting]
     Route: 048
     Dates: start: 20090828, end: 20090915
  18. SEROQUEL [Interacting]
     Route: 048
     Dates: start: 20090101, end: 20091112
  19. SEROQUEL [Interacting]
     Route: 048
     Dates: start: 20091113

REACTIONS (5)
  - CYSTITIS [None]
  - DRUG INTERACTION [None]
  - POTENTIATING DRUG INTERACTION [None]
  - PYELONEPHRITIS [None]
  - URINARY RETENTION [None]
